APPROVED DRUG PRODUCT: FOSINOPRIL SODIUM AND HYDROCHLOROTHIAZIDE
Active Ingredient: FOSINOPRIL SODIUM; HYDROCHLOROTHIAZIDE
Strength: 20MG;12.5MG
Dosage Form/Route: TABLET;ORAL
Application: A076945 | Product #002
Applicant: TEVA PHARMACEUTICALS USA INC
Approved: Jul 5, 2006 | RLD: No | RS: No | Type: DISCN